FAERS Safety Report 8993018 (Version 1)
Quarter: 2013Q1

REPORT INFORMATION
  Report Type: Spontaneous
  Country: GB (occurrence: GB)
  Receive Date: 20130102
  Receipt Date: 20130102
  Transmission Date: 20140127
  Serious: Yes (Other)
  Sender: FDA-Public Use
  Company Number: GB-JNJFOC-20121211259

PATIENT
  Age: 36 Year
  Sex: Male

DRUGS (6)
  1. HALDOL [Suspect]
     Indication: PSYCHOTIC DISORDER
     Route: 065
     Dates: start: 20120521, end: 20120920
  2. HALOPERIDOL [Suspect]
     Indication: PSYCHOTIC DISORDER
     Route: 048
     Dates: start: 20120521, end: 20120920
  3. BUPRENORPHINE [Concomitant]
     Indication: PRODUCT USED FOR UNKNOWN INDICATION
     Route: 065
  4. DIAZEPAM [Concomitant]
     Indication: PRODUCT USED FOR UNKNOWN INDICATION
     Route: 065
  5. MIRTAZAPINE [Concomitant]
     Indication: PRODUCT USED FOR UNKNOWN INDICATION
     Route: 065
  6. PROGESTERONE [Concomitant]
     Indication: PREMENSTRUAL SYNDROME
     Route: 065

REACTIONS (7)
  - Aggression [Recovering/Resolving]
  - Drooling [Recovering/Resolving]
  - Menstruation delayed [Recovering/Resolving]
  - Personality change [Recovering/Resolving]
  - Aphasia [Recovering/Resolving]
  - Tongue disorder [Recovering/Resolving]
  - Muscle twitching [Recovering/Resolving]
